FAERS Safety Report 6823805-6 (Version None)
Quarter: 2010Q3

REPORT INFORMATION
  Report Type: 
  Country: None (occurrence: None)
  Receive Date: 20100708
  Receipt Date: 20061025
  Transmission Date: 20110219
  Serious: No
  Sender: FDA-Public Use
  Company Number: US-PFIZER INC-2006106637

PATIENT
  Sex: Female
  Weight: 65.8 kg

DRUGS (8)
  1. CHANTIX [Suspect]
     Indication: TOBACCO ABUSE
     Route: 048
     Dates: start: 20060101, end: 20060904
  2. CHANTIX [Suspect]
     Indication: EX-TOBACCO USER
  3. SPIRIVA [Concomitant]
  4. ALBUTEROL [Concomitant]
  5. NORVASC [Concomitant]
  6. ISOSORBIDE DINITRATE [Concomitant]
  7. PLAVIX [Concomitant]
  8. TIZANIDINE [Concomitant]

REACTIONS (3)
  - ABNORMAL DREAMS [None]
  - NAUSEA [None]
  - VOMITING [None]
